FAERS Safety Report 7759006-7 (Version None)
Quarter: 2011Q3

REPORT INFORMATION
  Report Type: 
  Country: None (occurrence: None)
  Receive Date: 20110919
  Receipt Date: 20110908
  Transmission Date: 20111222
  Serious: Yes (Other)
  Sender: FDA-Public Use
  Company Number: GB-SANOFI-AVENTIS-2011SA031476

PATIENT
  Age: 72 Year
  Sex: Female
  Weight: 67.6 kg

DRUGS (8)
  1. ANTIBIOTICS [Concomitant]
  2. ATENOLOL [Concomitant]
  3. LOPERAMIDE HCL [Concomitant]
     Indication: DIARRHOEA
     Dosage: DOSE:1 UNIT(S)
     Route: 065
     Dates: start: 20110519
  4. MULTAQ [Suspect]
     Indication: ATRIAL FIBRILLATION
     Route: 048
     Dates: start: 20110504
  5. FLECAINIDE ACETATE [Concomitant]
  6. PROPRANOLOL [Concomitant]
  7. ASPIRIN [Concomitant]
  8. PRAVASTATIN [Concomitant]

REACTIONS (7)
  - NAUSEA [None]
  - HYPERTENSION [None]
  - PANIC ATTACK [None]
  - MALAISE [None]
  - ANXIETY [None]
  - SYNCOPE [None]
  - ATRIAL FIBRILLATION [None]
